FAERS Safety Report 6755814-X (Version None)
Quarter: 2010Q2

REPORT INFORMATION
  Report Type: 
  Country: None (occurrence: None)
  Receive Date: 20100604
  Receipt Date: 20100526
  Transmission Date: 20101027
  Serious: Yes (Other)
  Sender: FDA-Public Use
  Company Number: GR-SANOFI-AVENTIS-2010SA030657

PATIENT
  Sex: Female

DRUGS (1)
  1. KETEK [Suspect]

REACTIONS (1)
  - HEPATITIS [None]
